FAERS Safety Report 12188484 (Version 1)
Quarter: 2016Q1

REPORT INFORMATION
  Report Type: Spontaneous
  Country: US (occurrence: US)
  Receive Date: 20160317
  Receipt Date: 20160317
  Transmission Date: 20160526
  Serious: Yes (Hospitalization, Other)
  Sender: FDA-Public Use
  Company Number: US-009507513-1603USA006985

PATIENT
  Age: 74 Year
  Sex: Female
  Weight: 52.13 kg

DRUGS (5)
  1. LASIX [Suspect]
     Active Substance: FUROSEMIDE
     Dosage: UNK
     Route: 042
     Dates: start: 20150930, end: 20151001
  2. ALLOPURINOL. [Suspect]
     Active Substance: ALLOPURINOL
     Dosage: 100 MG, UNKNOWN
     Route: 048
  3. PRINIVIL [Suspect]
     Active Substance: LISINOPRIL
     Indication: ESSENTIAL HYPERTENSION
     Dosage: 5 MG, UNKNOWN
     Route: 048
     Dates: end: 20151001
  4. THEOPHYLLINE [Suspect]
     Active Substance: THEOPHYLLINE ANHYDROUS
     Dosage: UNK
     Route: 065
     Dates: end: 20150930
  5. SUTENT [Suspect]
     Active Substance: SUNITINIB MALATE
     Dosage: 50 MG, QD
     Route: 048
     Dates: start: 20150926, end: 20151007

REACTIONS (17)
  - Cardiac failure congestive [Unknown]
  - Depression [Unknown]
  - Hypothyroidism [Unknown]
  - Troponin increased [Unknown]
  - Cardiac failure congestive [Unknown]
  - Acute kidney injury [Unknown]
  - Chronic kidney disease [Unknown]
  - Cardiomyopathy [Unknown]
  - Hypomagnesaemia [Unknown]
  - Renal cell carcinoma [Unknown]
  - Hyperlipidaemia [Unknown]
  - Chronic obstructive pulmonary disease [Unknown]
  - Gout [Unknown]
  - Respiratory failure [Unknown]
  - Anaemia [Unknown]
  - Emphysema [Unknown]
  - Metastases to lung [Unknown]

NARRATIVE: CASE EVENT DATE: 20140429
